FAERS Safety Report 19605275 (Version 3)
Quarter: 2022Q2

REPORT INFORMATION
  Report Type: Spontaneous
  Country: SI (occurrence: SI)
  Receive Date: 20210723
  Receipt Date: 20220609
  Transmission Date: 20220720
  Serious: Yes (Other)
  Sender: FDA-Public Use
  Company Number: SI-NOVARTISPH-NVSC2021SI155535

PATIENT
  Age: 57 Year
  Sex: Female

DRUGS (2)
  1. CYCLOSPORINE [Suspect]
     Active Substance: CYCLOSPORINE
     Indication: Chronic graft versus host disease
     Dosage: UNK
     Route: 065
  2. METHYLPREDNISOLONE [Concomitant]
     Active Substance: METHYLPREDNISOLONE
     Indication: Product used for unknown indication
     Dosage: UNK
     Route: 065

REACTIONS (7)
  - Chronic graft versus host disease in eye [Unknown]
  - Chronic graft versus host disease [Unknown]
  - Dyspnoea [Not Recovered/Not Resolved]
  - Forced expiratory volume decreased [Not Recovered/Not Resolved]
  - Serum ferritin increased [Unknown]
  - Hepatic enzyme increased [Unknown]
  - Drug ineffective [Unknown]

NARRATIVE: CASE EVENT DATE: 20210101
